FAERS Safety Report 14977456 (Version 8)
Quarter: 2018Q4

REPORT INFORMATION
  Report Type: Spontaneous
  Country: JP (occurrence: JP)
  Receive Date: 20180606
  Receipt Date: 20181224
  Transmission Date: 20190204
  Serious: Yes (Life-Threatening, Hospitalization, Other)
  Sender: FDA-Public Use
  Company Number: JP-BRISTOL-MYERS SQUIBB COMPANY-BMS-2018-051655

PATIENT
  Age: 76 Year
  Sex: Male
  Weight: 75 kg

DRUGS (2)
  1. OPDIVO [Suspect]
     Active Substance: NIVOLUMAB
     Indication: GASTRIC CANCER RECURRENT
     Dosage: 3 MG/KG, TWICE A MONTH
     Route: 041
     Dates: start: 20180508, end: 20180522
  2. OPDIVO [Suspect]
     Active Substance: NIVOLUMAB
     Indication: PRODUCT USED FOR UNKNOWN INDICATION
     Dosage: UNK
     Route: 065
     Dates: start: 2018

REACTIONS (4)
  - Fulminant type 1 diabetes mellitus [Recovered/Resolved]
  - Primary adrenal insufficiency [Recovered/Resolved]
  - Diabetic ketoacidosis [Unknown]
  - Disuse syndrome [Unknown]

NARRATIVE: CASE EVENT DATE: 20180529
